FAERS Safety Report 18165631 (Version 1)
Quarter: 2020Q3

REPORT INFORMATION
  Report Type: Spontaneous
  Country: CN (occurrence: CN)
  Receive Date: 20200819
  Receipt Date: 20200819
  Transmission Date: 20201103
  Serious: Yes (Other)
  Sender: FDA-Public Use
  Company Number: CN-B.I. PHARMACEUTICALS,INC./RIDGEFIELD-2020-BI-041999

PATIENT
  Age: 66 Year
  Sex: Female

DRUGS (4)
  1. CISPLATIN;PEMETREXED [Concomitant]
     Indication: NON-SMALL CELL LUNG CANCER
     Route: 065
  2. CISPLATIN;PEMETREXED [Concomitant]
     Indication: GENE MUTATION
  3. GILOTRIF [Suspect]
     Active Substance: AFATINIB
     Indication: NON-SMALL CELL LUNG CANCER
     Route: 065
  4. GILOTRIF [Suspect]
     Active Substance: AFATINIB
     Indication: GENE MUTATION

REACTIONS (4)
  - Palmar-plantar erythrodysaesthesia syndrome [Unknown]
  - Hypertension [Unknown]
  - Malignant neoplasm progression [Recovering/Resolving]
  - Fatigue [Unknown]
